FAERS Safety Report 8890136 (Version 1)
Quarter: 2012Q4

REPORT INFORMATION
  Report Type: 
  Country: DE (occurrence: DE)
  Receive Date: 20121107
  Receipt Date: 20121107
  Transmission Date: 20130627
  Serious: Yes (Other)
  Sender: FDA-Public Use
  Company Number: DE-JNJFOC-20121102773

PATIENT
  Age: 85 None
  Sex: Female

DRUGS (6)
  1. XARELTO [Suspect]
     Indication: CEREBROVASCULAR ACCIDENT PROPHYLAXIS
     Route: 048
  2. XARELTO [Suspect]
     Indication: ATRIAL FIBRILLATION
     Route: 048
  3. PANTOZOL [Concomitant]
  4. MIRTAZAPIN [Concomitant]
  5. LOSARTAN [Concomitant]
  6. CITALOPRAM [Concomitant]

REACTIONS (4)
  - Gastrointestinal haemorrhage [Unknown]
  - Basal ganglia haemorrhage [Unknown]
  - Hemiparesis [Unknown]
  - Posture abnormal [Unknown]
